FAERS Safety Report 21777403 (Version 16)
Quarter: 2023Q4

REPORT INFORMATION
  Report Type: Spontaneous
  Country: CA (occurrence: CA)
  Receive Date: 20221226
  Receipt Date: 20231221
  Transmission Date: 20240110
  Serious: Yes (Other)
  Sender: FDA-Public Use
  Company Number: CA-CELLTRION INC.-2022CA019194

PATIENT

DRUGS (11)
  1. INFLECTRA [Suspect]
     Active Substance: INFLIXIMAB-DYYB
     Indication: Crohn^s disease
     Dosage: 330 MG, (5 MG/KG, EVERY 8 WEEKS) INDUCTION WEEKS 0, 2, 6, THEN EVERY 8 WEEKS, WEEK 0
     Route: 042
     Dates: start: 20221104, end: 20221104
  2. INFLECTRA [Suspect]
     Active Substance: INFLIXIMAB-DYYB
     Dosage: 5 MG/KG EVERY 8 WEEKS, INDUCTION WEEKS 0, 2, 6, WEEK 2
     Route: 042
     Dates: start: 20221118
  3. INFLECTRA [Suspect]
     Active Substance: INFLIXIMAB-DYYB
     Dosage: 5 MG/KG EVERY 8 WEEKS, INDUCTION WEEKS 0, 2, 6
     Route: 042
     Dates: start: 20221215
  4. INFLECTRA [Suspect]
     Active Substance: INFLIXIMAB-DYYB
     Dosage: 340 MG, (5 MG/KG, EVERY 8 WEEKS)
     Route: 042
     Dates: start: 20230209
  5. INFLECTRA [Suspect]
     Active Substance: INFLIXIMAB-DYYB
     Dosage: 350 MG EVERY 8 WEEKS
     Route: 042
     Dates: start: 20230403
  6. INFLECTRA [Suspect]
     Active Substance: INFLIXIMAB-DYYB
     Dosage: 350 MG (5 MG/KG), EVERY 7 WEEKS AND 3 DAYS
     Route: 042
     Dates: start: 20230525
  7. INFLECTRA [Suspect]
     Active Substance: INFLIXIMAB-DYYB
     Dosage: 365 MG, EVERY 8 WEEKS
     Route: 042
     Dates: start: 20230727
  8. INFLECTRA [Suspect]
     Active Substance: INFLIXIMAB-DYYB
     Dosage: 370 MG, EVERY 8 WEEKS
     Route: 042
     Dates: start: 20230918
  9. INFLECTRA [Suspect]
     Active Substance: INFLIXIMAB-DYYB
     Dosage: 370 MG, EVERY 8 WEEKS
     Route: 042
     Dates: start: 20231114
  10. INFLECTRA [Suspect]
     Active Substance: INFLIXIMAB-DYYB
     Dosage: 690 MG, 4 WEEKS, 10 MG/KG, EVERY 4 WEEKS
     Route: 042
     Dates: start: 20231211
  11. TYLENOL [Concomitant]
     Active Substance: ACETAMINOPHEN
     Indication: Premedication
     Dosage: UNK

REACTIONS (21)
  - Uveitis [Recovered/Resolved]
  - Gastric ulcer [Recovering/Resolving]
  - Off label use [Unknown]
  - Drug ineffective [Unknown]
  - Headache [Recovered/Resolved]
  - Abscess [Recovered/Resolved]
  - Neck pain [Unknown]
  - Musculoskeletal stiffness [Recovering/Resolving]
  - Migraine [Not Recovered/Not Resolved]
  - Arthralgia [Recovered/Resolved]
  - Anal fissure [Recovered/Resolved]
  - Condition aggravated [Recovering/Resolving]
  - Nausea [Recovering/Resolving]
  - Vomiting [Recovering/Resolving]
  - Fluid intake reduced [Not Recovered/Not Resolved]
  - Fistula [Recovered/Resolved]
  - Food intolerance [Unknown]
  - Aphthous ulcer [Recovered/Resolved]
  - Musculoskeletal stiffness [Recovering/Resolving]
  - Arthralgia [Recovered/Resolved]
  - Anal fissure [Recovered/Resolved]

NARRATIVE: CASE EVENT DATE: 20220101
